FAERS Safety Report 12426895 (Version 1)
Quarter: 2016Q2

REPORT INFORMATION
  Report Type: Spontaneous
  Country: US (occurrence: US)
  Receive Date: 20160601
  Receipt Date: 20160601
  Transmission Date: 20160815
  Serious: Yes (Hospitalization)
  Sender: FDA-Public Use
  Company Number: US-009507513-1606USA000337

PATIENT
  Age: 16 Month
  Sex: Male

DRUGS (3)
  1. PROVENTIL [Concomitant]
     Active Substance: ALBUTEROL
  2. EPINEPHRINE. [Suspect]
     Active Substance: EPINEPHRINE
     Route: 030
  3. HEXADROL [Suspect]
     Active Substance: DEXAMETHASONE
     Route: 048

REACTIONS (1)
  - Drug ineffective [Unknown]
